APPROVED DRUG PRODUCT: DIAZEPAM
Active Ingredient: DIAZEPAM
Strength: 5MG
Dosage Form/Route: TABLET;ORAL
Application: A070904 | Product #001
Applicant: FERNDALE LABORATORIES INC
Approved: Apr 1, 1987 | RLD: No | RS: No | Type: DISCN